FAERS Safety Report 6534965-9 (Version None)
Quarter: 2010Q1

REPORT INFORMATION
  Report Type: 
  Country: None (occurrence: None)
  Receive Date: 20100111
  Receipt Date: 20100111
  Transmission Date: 20100710
  Serious: No
  Sender: FDA-Public Use
  Company Number: None

PATIENT
  Age: 51 Year
  Sex: Male

DRUGS (1)
  1. ETRAVIRINE [Suspect]
     Indication: HIV INFECTION
     Dosage: 200 MG BID PO
     Route: 048
     Dates: start: 20091014, end: 20091028

REACTIONS (2)
  - NAUSEA [None]
  - VOMITING [None]
